FAERS Safety Report 19753295 (Version 4)
Quarter: 2021Q3

REPORT INFORMATION
  Report Type: Report from Study
  Country: US (occurrence: US)
  Receive Date: 20210826
  Receipt Date: 20210928
  Transmission Date: 20211014
  Serious: Yes (Other)
  Sender: FDA-Public Use
  Company Number: US-PFIZER INC-202101041913

PATIENT
  Age: 67 Year
  Sex: Female

DRUGS (4)
  1. IBRANCE [Suspect]
     Active Substance: PALBOCICLIB
     Dosage: 100 MG, CYCLIC [DAY 1?21 OF 28 DAY CYCLE]
     Route: 048
     Dates: start: 202108
  2. IBRANCE [Suspect]
     Active Substance: PALBOCICLIB
     Indication: BREAST CANCER FEMALE
     Dosage: 125 MG (DAY 1?21 OF 28 DAY CYCLE)
     Route: 048
     Dates: start: 202008
  3. LETROZOLE. [Concomitant]
     Active Substance: LETROZOLE
  4. IBRANCE [Suspect]
     Active Substance: PALBOCICLIB
     Dosage: 100 MG, CYCLIC (DAILY DAY 1?21 OF 28 DAY CYCLE)
     Route: 048
     Dates: start: 20210816

REACTIONS (14)
  - Second primary malignancy [Unknown]
  - Lung neoplasm [Unknown]
  - Flatulence [Unknown]
  - Diarrhoea [Unknown]
  - Pain of skin [Unknown]
  - Nausea [Unknown]
  - Pruritus [Unknown]
  - Herpes virus infection [Unknown]
  - Constipation [Unknown]
  - Alopecia [Unknown]
  - Dry eye [Unknown]
  - White blood cell count decreased [Unknown]
  - Skin lesion [Recovering/Resolving]
  - Red blood cell count decreased [Unknown]
